FAERS Safety Report 24755295 (Version 1)
Quarter: 2024Q4

REPORT INFORMATION
  Report Type: Spontaneous
  Country: CH (occurrence: CH)
  Receive Date: 20241219
  Receipt Date: 20241219
  Transmission Date: 20250115
  Serious: Yes (Death, Hospitalization, Other)
  Sender: MYLAN
  Company Number: None

PATIENT
  Age: 70 Year
  Sex: Female
  Weight: 110 kg

DRUGS (5)
  1. ATORVASTATIN [Suspect]
     Active Substance: ATORVASTATIN
     Indication: Dyslipidaemia
     Dosage: 80 MILLIGRAM, QD (80 MG 1 IN THE EVENING)
     Route: 048
  2. OZEMPIC [Suspect]
     Active Substance: SEMAGLUTIDE
     Indication: Type 2 diabetes mellitus
     Dosage: 1 MILLIGRAM, QW (1 MG ONCE A WEEK ON TUESDAYS)
     Route: 058
  3. Redormin [Concomitant]
     Dosage: 500 MILLIGRAM, QD (500 MG 1 AT NIGH)
     Route: 048
  4. FLUPENTIXOL [Concomitant]
     Active Substance: FLUPENTIXOL
     Indication: Schizophrenia
     Dosage: 5 MILLIGRAM, QD (5 MG 1 IN THE MORNING)
     Route: 048
  5. METFORMIN HYDROCHLORIDE [Concomitant]
     Active Substance: METFORMIN HYDROCHLORIDE
     Indication: Type 2 diabetes mellitus
     Dosage: 1000 MILLIGRAM, BID (1000 MG 1 IN THE MORNING AND EVENING)
     Route: 048

REACTIONS (1)
  - Pancreatitis acute [Fatal]

NARRATIVE: CASE EVENT DATE: 20241117
